FAERS Safety Report 7038073-2 (Version None)
Quarter: 2010Q4

REPORT INFORMATION
  Report Type: 
  Country: None (occurrence: None)
  Receive Date: 20101011
  Receipt Date: 20100927
  Transmission Date: 20110411
  Serious: Yes (Death, Hospitalization, Other)
  Sender: FDA-Public Use
  Company Number: US-PFIZER INC-2010123150

PATIENT
  Sex: Female

DRUGS (8)
  1. LYRICA [Suspect]
     Indication: PAIN MANAGEMENT
     Dosage: UNK
  2. METHADONE [Suspect]
     Indication: PAIN MANAGEMENT
     Dosage: UNK
  3. HYDROCODONE [Suspect]
     Indication: PAIN MANAGEMENT
     Dosage: UNK
  4. MORPHINE [Suspect]
     Indication: PAIN MANAGEMENT
     Dosage: UNK
  5. DIAZEPAM [Suspect]
     Indication: PAIN MANAGEMENT
     Dosage: UNK
  6. VICODIN [Suspect]
     Indication: PAIN MANAGEMENT
     Dosage: UNK
  7. HYDROMORPHONE [Suspect]
     Indication: PAIN MANAGEMENT
     Dosage: UNK
  8. CYCLOBENZAPRINE [Suspect]
     Indication: PAIN MANAGEMENT
     Dosage: UNK

REACTIONS (10)
  - ANXIETY [None]
  - DELUSIONAL PERCEPTION [None]
  - DISORIENTATION [None]
  - FALL [None]
  - HALLUCINATION [None]
  - INJURY [None]
  - PARANOIA [None]
  - SEDATION [None]
  - SOCIAL AVOIDANT BEHAVIOUR [None]
  - SOMNAMBULISM [None]
